FAERS Safety Report 9537770 (Version 1)
Quarter: 2013Q3

REPORT INFORMATION
  Report Type: Spontaneous
  Country: FR (occurrence: FR)
  Receive Date: 20130919
  Receipt Date: 20130919
  Transmission Date: 20140515
  Serious: Yes (Life-Threatening, Hospitalization)
  Sender: FDA-Public Use
  Company Number: FR-MYLANLABS-2013S1020527

PATIENT
  Age: 50 Year
  Sex: Female
  Weight: 140 kg

DRUGS (1)
  1. DIPOTASSIUM CLORAZEPATE [Suspect]
     Indication: ANXIETY
     Dosage: REPEATED DOSES; REACHED TOTAL AMOUNT OF 460MG WITHIN 6D
     Route: 065

REACTIONS (1)
  - Coma [Recovered/Resolved]
